FAERS Safety Report 20108867 (Version 4)
Quarter: 2022Q3

REPORT INFORMATION
  Report Type: Spontaneous
  Country: US (occurrence: US)
  Receive Date: 20211124
  Receipt Date: 20220725
  Transmission Date: 20221026
  Serious: Yes (Hospitalization, Other)
  Sender: FDA-Public Use
  Company Number: US-PFIZER INC-202101105149

PATIENT
  Age: 46 Year
  Sex: Female

DRUGS (1)
  1. XELJANZ XR [Suspect]
     Active Substance: TOFACITINIB CITRATE
     Dosage: 11 MG

REACTIONS (9)
  - Fall [Unknown]
  - Head injury [Unknown]
  - Faecaloma [Unknown]
  - Narcolepsy [Unknown]
  - Dental implantation [Unknown]
  - Feeding disorder [Unknown]
  - Cough [Unknown]
  - Peripheral coldness [Unknown]
  - Drug ineffective [Unknown]
